FAERS Safety Report 23547288 (Version 1)
Quarter: 2024Q1

REPORT INFORMATION
  Report Type: Report from Study
  Country: US (occurrence: US)
  Receive Date: 20240221
  Receipt Date: 20240221
  Transmission Date: 20240410
  Serious: Yes (Hospitalization)
  Sender: FDA-Public Use
  Company Number: US-ORPHANEU-2024001144

PATIENT

DRUGS (1)
  1. CARBAGLU [Suspect]
     Active Substance: CARGLUMIC ACID
     Indication: Product used for unknown indication
     Dosage: 1700 MILLIGRAM, BID (DISSOLVE EIGHT AND ONE-HALF TABLETS (1,700 MG) IN 2.5 ML OF WATER PER TABLET AN
     Route: 048

REACTIONS (1)
  - Ammonia increased [Unknown]
